FAERS Safety Report 4706534-4 (Version None)
Quarter: 2005Q2

REPORT INFORMATION
  Report Type: 
  Country: None (occurrence: None)
  Receive Date: 20050629
  Receipt Date: 20050429
  Transmission Date: 20051028
  Serious: No
  Sender: FDA-Public Use
  Company Number: 05P-163-0298927-00

PATIENT
  Age: 45 Year
  Sex: Female
  Weight: 83.9154 kg

DRUGS (10)
  1. HUMIRA [Suspect]
     Indication: RHEUMATOID ARTHRITIS
     Dosage: 40 MG, 1 IN 2 WK, SUBCUTANEOUS
     Route: 058
     Dates: start: 20050217
  2. CELECOXIB [Concomitant]
  3. GABAPENTIN [Concomitant]
  4. LEFLUNOMIDE [Concomitant]
  5. MORPHINE SULFATE [Concomitant]
  6. ESTROGENS CONJUGATED [Concomitant]
  7. LEVOTHYROXINE SODIUM [Concomitant]
  8. AMITRIPTYLINE HCL [Concomitant]
  9. ORPHENADRINE CITRATE [Concomitant]
  10. DIOVAN HCT [Concomitant]

REACTIONS (1)
  - INJECTION SITE PAIN [None]
